FAERS Safety Report 12987336 (Version 1)
Quarter: 2016Q4

REPORT INFORMATION
  Report Type: Spontaneous
  Country: GB (occurrence: GB)
  Receive Date: 20161130
  Receipt Date: 20161130
  Transmission Date: 20170207
  Serious: Yes (Hospitalization, Other)
  Sender: FDA-Public Use
  Company Number: GB-INTERNATIONAL MEDICATION SYSTEMS, LIMITED-1060250

PATIENT

DRUGS (1)
  1. NALOXONE [Suspect]
     Active Substance: NALOXONE
     Route: 030
     Dates: start: 20160517, end: 20160517

REACTIONS (2)
  - Contraindicated product administered [Unknown]
  - Drug withdrawal convulsions [Unknown]

NARRATIVE: CASE EVENT DATE: 20160517
